FAERS Safety Report 8761229 (Version 1)
Quarter: 2012Q4

REPORT INFORMATION
  Report Type: 
  Country: US (occurrence: US)
  Receive Date: 20120830
  Receipt Date: 20120830
  Transmission Date: 20130627
  Serious: Yes (Other)
  Sender: FDA-Public Use
  Company Number: US-GLAXOSMITHKLINE-A0991451A

PATIENT
  Age: 82 Year
  Sex: Female
  Weight: 66.4 kg

DRUGS (7)
  1. PROPAFENONE [Suspect]
     Indication: PRODUCT USED FOR UNKNOWN INDICATION
     Route: 065
     Dates: start: 201112
  2. DIGOXIN [Concomitant]
     Dosage: .125MG Alternate days
  3. GLUCOSAMINE CHONDROITIN [Concomitant]
  4. RED YEAST RICE [Concomitant]
     Dosage: 600MG Four times per day
  5. FISH OIL [Concomitant]
  6. CALCIUM+VITAMIN D [Concomitant]
     Dosage: 1200MG Per day
  7. PRADAXA [Concomitant]
     Dosage: 150MG Twice per day

REACTIONS (1)
  - Atrial fibrillation [Unknown]
